FAERS Safety Report 8564134-2 (Version None)
Quarter: 2012Q3

REPORT INFORMATION
  Report Type: 
  Country: None (occurrence: None)
  Receive Date: 20120803
  Receipt Date: 20120723
  Transmission Date: 20120928
  Serious: Yes (Other)
  Sender: FDA-Public Use
  Company Number: JP-AMGEN-JPNCT2012048333

PATIENT
  Age: 81 Year
  Sex: Male
  Weight: 52 kg

DRUGS (15)
  1. FLUVASTATIN SODIUM [Concomitant]
     Dosage: DOSAGE IS UNCERTAIN.
     Route: 048
  2. PERSANTINE [Concomitant]
     Indication: GLOMERULONEPHRITIS CHRONIC
     Dosage: DOSAGE IS UNCERTAIN.
     Route: 048
  3. DARBEPOETIN ALFA - KHK [Suspect]
     Dosage: 60 MUG, Q4WK
     Route: 058
     Dates: start: 20111222, end: 20120315
  4. DARBEPOETIN ALFA - KHK [Suspect]
     Dosage: 60 MUG, UNK
     Dates: start: 20120119
  5. DARBEPOETIN ALFA - KHK [Suspect]
     Dosage: 120 MUG, Q4WK
     Route: 058
     Dates: start: 20120412
  6. DARBEPOETIN ALFA - KHK [Suspect]
     Dosage: 60 MUG, UNK
     Dates: start: 20120216
  7. FERROUS CITRATE [Concomitant]
     Dosage: DOSAGE IS UNCERTAIN.
     Route: 048
  8. EVIPROSTAT N [Concomitant]
     Dosage: DOSAGE IS UNCERTAIN.
     Route: 048
  9. KREMEZIN [Concomitant]
     Indication: GLOMERULONEPHRITIS CHRONIC
     Dosage: DOSAGE IS UNCERTAIN.
     Route: 048
  10. CONIEL [Concomitant]
     Dosage: DOSAGE IS UNCERTAIN.
     Route: 048
  11. DARBEPOETIN ALFA - KHK [Suspect]
     Indication: NEPHROGENIC ANAEMIA
     Dosage: 30 MUG, Q2WK
     Route: 058
     Dates: start: 20111124, end: 20111208
  12. ALLOPURINOL [Concomitant]
     Dosage: DOSAGE IS UNCERTAIN.
     Route: 048
  13. DARBEPOETIN ALFA - KHK [Suspect]
     Dosage: 60 MUG, UNK
     Dates: start: 20120315
  14. LOSARTAN POTASSIUM [Concomitant]
     Dosage: DOSAGE IS UNCERTAIN.
     Route: 048
  15. ASPIRIN [Concomitant]
     Dosage: DOSAGE IS UNCERTAIN.
     Route: 048

REACTIONS (1)
  - RENAL FAILURE [None]
